FAERS Safety Report 6162012-X (Version None)
Quarter: 2009Q2

REPORT INFORMATION
  Report Type: 
  Country: None (occurrence: None)
  Receive Date: 20090417
  Receipt Date: 20090302
  Transmission Date: 20091009
  Serious: Yes (Hospitalization)
  Sender: FDA-Public Use
  Company Number: AMAN20090005

PATIENT
  Age: 2 Year
  Sex: Male
  Weight: 14 kg

DRUGS (1)
  1. AMANTADINE HCL [Suspect]
     Dosage: 8-15 CAPLETS, ONCE, PER ORAL
     Route: 048

REACTIONS (12)
  - ACCIDENTAL DRUG INTAKE BY CHILD [None]
  - AGITATION [None]
  - AREFLEXIA [None]
  - BLOOD PRESSURE INCREASED [None]
  - GRAND MAL CONVULSION [None]
  - HYPERHIDROSIS [None]
  - MYDRIASIS [None]
  - OVERDOSE [None]
  - PETECHIAE [None]
  - SINUS TACHYCARDIA [None]
  - STATUS EPILEPTICUS [None]
  - VOMITING [None]
